FAERS Safety Report 23629722 (Version 1)
Quarter: 2024Q1

REPORT INFORMATION
  Report Type: Spontaneous
  Country: JP (occurrence: JP)
  Receive Date: 20240314
  Receipt Date: 20240314
  Transmission Date: 20240410
  Serious: Yes (Other)
  Sender: FDA-Public Use
  Company Number: JP-DSJP-DSJ-2023-145115

PATIENT
  Age: 67 Year
  Sex: Female

DRUGS (1)
  1. DENOSUMAB [Suspect]
     Active Substance: DENOSUMAB
     Indication: Osteoporosis prophylaxis
     Dosage: UNK
     Route: 065

REACTIONS (4)
  - Atypical femur fracture [Unknown]
  - Intervertebral disc protrusion [Unknown]
  - Ankle fracture [Unknown]
  - Foot fracture [Unknown]
